FAERS Safety Report 7292598-3 (Version None)
Quarter: 2011Q1

REPORT INFORMATION
  Report Type: 
  Country: None (occurrence: None)
  Receive Date: 20110203
  Receipt Date: 20110124
  Transmission Date: 20110831
  Serious: Yes (Hospitalization)
  Sender: FDA-Public Use
  Company Number: 020222

PATIENT
  Sex: Female
  Weight: 101.2 kg

DRUGS (1)
  1. CIMZIA [Suspect]
     Indication: CROHN'S DISEASE
     Dosage: (2 SHOTS EVERY 4 WEEKS SUBCUTANEOUS)
     Route: 058
     Dates: start: 20100501

REACTIONS (2)
  - ABDOMINAL ABSCESS [None]
  - ABDOMINAL PAIN [None]
